FAERS Safety Report 4735554-9 (Version None)
Quarter: 2005Q3

REPORT INFORMATION
  Report Type: 
  Country: None (occurrence: None)
  Receive Date: 20050805
  Receipt Date: 20041004
  Transmission Date: 20060218
  Serious: Yes (Hospitalization, Disabling, Other)
  Sender: FDA-Public Use
  Company Number: US-MERCK-0410USA00475

PATIENT
  Age: 63 Year
  Sex: Female
  Weight: 66 kg

DRUGS (12)
  1. VIOXX [Suspect]
     Indication: BACK PAIN
     Route: 048
     Dates: start: 19990101, end: 20040930
  2. VIOXX [Suspect]
     Indication: ARTHRITIS
     Route: 048
     Dates: start: 19990101, end: 20040930
  3. ACCUPRIL [Concomitant]
     Indication: HYPERTENSION
     Route: 065
     Dates: start: 19990111
  4. PREMARIN [Concomitant]
     Indication: HORMONE REPLACEMENT THERAPY
     Route: 048
     Dates: start: 19990111
  5. LIPITOR [Concomitant]
     Route: 048
     Dates: start: 19991021, end: 20030101
  6. HYDROCHLOROTHIAZIDE [Concomitant]
     Indication: HYPERTENSION
     Route: 048
     Dates: start: 19990111
  7. ASPIRIN [Concomitant]
     Indication: ISCHAEMIC HEART DISEASE PROPHYLAXIS
     Route: 048
     Dates: start: 19990111
  8. PREMARIN [Concomitant]
     Indication: VULVOVAGINAL DRYNESS
     Route: 067
  9. PRILOSEC [Concomitant]
     Route: 048
  10. CLARITIN [Concomitant]
     Route: 048
  11. VITAMIN E [Concomitant]
     Route: 048
  12. MIACALCIN [Concomitant]
     Route: 065

REACTIONS (25)
  - BACK DISORDER [None]
  - CEREBROVASCULAR ACCIDENT [None]
  - DIARRHOEA [None]
  - DIPLOPIA [None]
  - DIVERTICULUM [None]
  - DYSPEPSIA [None]
  - EYE DISORDER [None]
  - HAEMORRHOIDS [None]
  - HEADACHE [None]
  - INTERVERTEBRAL DISC DEGENERATION [None]
  - MYASTHENIA GRAVIS [None]
  - NAUSEA [None]
  - OSTEOPENIA [None]
  - OSTEOPOROSIS [None]
  - PAIN [None]
  - PAIN IN EXTREMITY [None]
  - PLANTAR FASCIITIS [None]
  - RECTOCELE [None]
  - RHINITIS ALLERGIC [None]
  - SPINAL COLUMN STENOSIS [None]
  - SPINAL COMPRESSION FRACTURE [None]
  - SPONDYLOLISTHESIS [None]
  - VAGINAL PROLAPSE [None]
  - VERTIGO [None]
  - VOMITING [None]
